FAERS Safety Report 10232331 (Version 1)
Quarter: 2014Q2

REPORT INFORMATION
  Report Type: Spontaneous
  Country: US (occurrence: US)
  Receive Date: 20140612
  Receipt Date: 20140612
  Transmission Date: 20141212
  Serious: Yes (Death, Hospitalization, Other)
  Sender: FDA-Public Use
  Company Number: US-AMGEN-USASP2014042894

PATIENT
  Age: 76 Year
  Sex: Male

DRUGS (1)
  1. ENBREL [Suspect]
     Indication: RHEUMATOID ARTHRITIS
     Dosage: UNK MG, QWK
     Route: 065
     Dates: start: 20120515, end: 201305

REACTIONS (7)
  - Cerebral haemorrhage [Fatal]
  - Pulmonary thrombosis [Recovered/Resolved]
  - Aortic valve replacement [Recovered/Resolved]
  - Fall [Recovered/Resolved]
  - Adverse event [Recovered/Resolved]
  - Rib fracture [Recovered/Resolved]
  - Loss of consciousness [Recovered/Resolved]
